FAERS Safety Report 10549312 (Version 1)
Quarter: 2014Q4

REPORT INFORMATION
  Report Type: Report from Study
  Country: US (occurrence: None)
  Receive Date: 20141016
  Receipt Date: 20141016
  Transmission Date: 20150529
  Serious: No
  Sender: FDA-Public Use
  Company Number: CABO-14004552

PATIENT
  Age: 72 Year
  Sex: Male

DRUGS (2)
  1. GABAPENTIN (GABAPENTIN) [Concomitant]
     Active Substance: GABAPENTIN
  2. COMETRIQ [Suspect]
     Active Substance: CABOZANTINIB S-MALATE
     Indication: PROSTATE CANCER
     Route: 048
     Dates: start: 20140620

REACTIONS (7)
  - Skin infection [None]
  - Skin exfoliation [None]
  - Drug ineffective for unapproved indication [None]
  - Skin haemorrhage [None]
  - Pain in extremity [None]
  - Platelet count decreased [None]
  - Off label use [None]

NARRATIVE: CASE EVENT DATE: 2014
